FAERS Safety Report 11825927 (Version 3)
Quarter: 2016Q4

REPORT INFORMATION
  Report Type: Spontaneous
  Country: US (occurrence: US)
  Receive Date: 20151211
  Receipt Date: 20161207
  Transmission Date: 20170206
  Serious: Yes (Death, Hospitalization, Other)
  Sender: FDA-Public Use
  Company Number: US-TEVA-616454USA

PATIENT
  Age: 38 Year
  Sex: Male

DRUGS (18)
  1. OXYCODONE [Suspect]
     Active Substance: OXYCODONE
     Dosage: 180 MILLIGRAM DAILY;
     Dates: start: 2007
  2. CLONIDINE. [Concomitant]
     Active Substance: CLONIDINE
  3. BENADRYL [Concomitant]
     Active Substance: DIPHENHYDRAMINE HYDROCHLORIDE
  4. PROCHLORPERAZINE. [Concomitant]
     Active Substance: PROCHLORPERAZINE
  5. NEXIUM [Concomitant]
     Active Substance: ESOMEPRAZOLE MAGNESIUM
     Dosage: 20 MILLIGRAM DAILY;
     Route: 048
  6. ENDOCET [Suspect]
     Active Substance: ACETAMINOPHEN\OXYCODONE HYDROCHLORIDE
     Route: 065
  7. NAPROXEN. [Concomitant]
     Active Substance: NAPROXEN
  8. KLONOPIN [Concomitant]
     Active Substance: CLONAZEPAM
     Dosage: 2 MILLIGRAM DAILY;
  9. ACTIQ [Suspect]
     Active Substance: FENTANYL CITRATE
     Indication: HEADACHE
     Route: 048
     Dates: start: 200508
  10. ACTIQ [Suspect]
     Active Substance: FENTANYL CITRATE
     Route: 048
     Dates: start: 200512, end: 2007
  11. LORAZEPAM. [Suspect]
     Active Substance: LORAZEPAM
     Route: 065
  12. XANAX [Suspect]
     Active Substance: ALPRAZOLAM
     Dosage: PRN
     Route: 065
  13. SUBOXONE [Suspect]
     Active Substance: BUPRENORPHINE HYDROCHLORIDE\NALOXONE HYDROCHLORIDE
     Route: 065
  14. PRILOSEC [Concomitant]
     Active Substance: OMEPRAZOLE MAGNESIUM
     Dosage: 40 MILLIGRAM DAILY;
  15. PANTOPRAZOLE [Concomitant]
     Active Substance: PANTOPRAZOLE SODIUM
  16. ACTIQ [Suspect]
     Active Substance: FENTANYL CITRATE
     Route: 048
     Dates: start: 2009, end: 2011
  17. PERCOCET [Suspect]
     Active Substance: ACETAMINOPHEN\OXYCODONE HYDROCHLORIDE
     Dosage: 10/325 MG
     Route: 065
  18. ELAVIL [Concomitant]
     Active Substance: AMITRIPTYLINE HYDROCHLORIDE
     Route: 065

REACTIONS (37)
  - Stupor [Unknown]
  - Nausea [Unknown]
  - Anxiety [Unknown]
  - Skin abrasion [Unknown]
  - Drug dependence [Unknown]
  - Major depression [Unknown]
  - Tooth abscess [Unknown]
  - Toothache [Unknown]
  - Ligament sprain [Unknown]
  - Depression [Unknown]
  - Lethargy [Unknown]
  - Neck pain [Unknown]
  - Feeling abnormal [Unknown]
  - Influenza [Unknown]
  - Accidental overdose [Unknown]
  - Tooth impacted [Unknown]
  - Intervertebral disc protrusion [Unknown]
  - Pain in extremity [Unknown]
  - Toxicity to various agents [Fatal]
  - Depressed mood [Unknown]
  - Decreased appetite [Unknown]
  - Product use issue [Unknown]
  - Hypoaesthesia [Recovered/Resolved]
  - Hypoaesthesia [Unknown]
  - Treatment noncompliance [Unknown]
  - Suicidal ideation [Unknown]
  - Anhedonia [Unknown]
  - Vomiting [Recovered/Resolved]
  - Drug withdrawal syndrome [Unknown]
  - Weight decreased [Unknown]
  - Pulmonary mass [Unknown]
  - Fall [Unknown]
  - Migraine [Unknown]
  - Headache [Unknown]
  - Vomiting [Unknown]
  - Stress [Unknown]
  - Insomnia [Unknown]

NARRATIVE: CASE EVENT DATE: 2006
